FAERS Safety Report 6306589-X (Version None)
Quarter: 2009Q3

REPORT INFORMATION
  Report Type: 
  Country: None (occurrence: None)
  Receive Date: 20090812
  Receipt Date: 20090805
  Transmission Date: 20100115
  Serious: Yes (Death)
  Sender: FDA-Public Use
  Company Number: A0800737A

PATIENT
  Age: 42 Year
  Sex: Male

DRUGS (3)
  1. COMBIVIR [Suspect]
     Indication: DRUG USE FOR UNKNOWN INDICATION
     Route: 048
  2. ERYTHROMYCIN [Concomitant]
  3. SULFAMETHOXAZOLE [Concomitant]

REACTIONS (1)
  - DEATH [None]
